FAERS Safety Report 9338978 (Version 2)
Quarter: 2013Q2

REPORT INFORMATION
  Report Type: Spontaneous
  Country: US (occurrence: US)
  Receive Date: 20130610
  Receipt Date: 20130611
  Transmission Date: 20140414
  Serious: Yes (Hospitalization, Other)
  Sender: FDA-Public Use
  Company Number: PHHY2013US056732

PATIENT
  Age: 68 Year
  Sex: Female

DRUGS (2)
  1. METHOTREXATE [Suspect]
     Indication: RHEUMATOID ARTHRITIS
     Dosage: 7.5 MG, QD
     Route: 048
  2. METHOTREXATE [Suspect]
     Dosage: 7.5 MG, QW
     Route: 048

REACTIONS (11)
  - Dysphagia [Unknown]
  - Fatigue [Unknown]
  - Asthenia [Unknown]
  - Lip erosion [Unknown]
  - Emotional distress [Unknown]
  - Incorrect drug administration duration [Unknown]
  - Dehydration [Unknown]
  - Mouth ulceration [Unknown]
  - Renal failure acute [Recovering/Resolving]
  - Pancytopenia [Recovering/Resolving]
  - Neutropenia [Recovering/Resolving]
